FAERS Safety Report 7809555-8 (Version None)
Quarter: 2011Q4

REPORT INFORMATION
  Report Type: 
  Country: None (occurrence: None)
  Receive Date: 20111012
  Receipt Date: 20111010
  Transmission Date: 20120403
  Serious: Yes (Death, Other)
  Sender: FDA-Public Use
  Company Number: PHFR2011GB05796

PATIENT
  Sex: Male

DRUGS (1)
  1. CLOZAPINE [Suspect]
     Indication: SCHIZOPHRENIA
     Route: 048
     Dates: start: 19900709

REACTIONS (5)
  - METASTATIC NEOPLASM [None]
  - METASTASES TO BONE [None]
  - METASTASES TO LIVER [None]
  - RESPIRATORY DISORDER [None]
  - LUNG CANCER METASTATIC [None]
